FAERS Safety Report 18457083 (Version 1)
Quarter: 2020Q4

REPORT INFORMATION
  Report Type: Spontaneous
  Country: FR (occurrence: FR)
  Receive Date: 20201103
  Receipt Date: 20201103
  Transmission Date: 20210114
  Serious: Yes (Hospitalization)
  Sender: FDA-Public Use
  Company Number: FR-ELI_LILLY_AND_COMPANY-FR202010010756

PATIENT
  Age: 67 Year
  Sex: Female
  Weight: 74 kg

DRUGS (1)
  1. ALIMTA [Suspect]
     Active Substance: PEMETREXED DISODIUM
     Indication: LUNG CARCINOMA CELL TYPE UNSPECIFIED STAGE IV
     Dosage: 925 MG, UNKNOWN
     Route: 041
     Dates: start: 20191218, end: 20200710

REACTIONS (2)
  - Diverticular fistula [Recovered/Resolved with Sequelae]
  - Diverticulitis [Recovered/Resolved with Sequelae]

NARRATIVE: CASE EVENT DATE: 20200803
